FAERS Safety Report 8722675 (Version 2)
Quarter: 2013Q4

REPORT INFORMATION
  Report Type: Spontaneous
  Country: US (occurrence: US)
  Receive Date: 20120814
  Receipt Date: 20131101
  Transmission Date: 20140711
  Serious: No
  Sender: FDA-Public Use
  Company Number: US-009507513-1208USA002558

PATIENT
  Sex: Female

DRUGS (2)
  1. MIRALAX [Suspect]
     Indication: PRODUCT USED FOR UNKNOWN INDICATION
     Dosage: 17 G, ONCE
     Route: 048
     Dates: start: 20120611
  2. MIRALAX [Suspect]
     Dosage: 17 UNK, UNK
     Route: 048
     Dates: start: 20120612

REACTIONS (2)
  - Overdose [Unknown]
  - Drug ineffective [Unknown]
